FAERS Safety Report 6601925-9 (Version None)
Quarter: 2010Q1

REPORT INFORMATION
  Report Type: 
  Country: None (occurrence: None)
  Receive Date: 20100218
  Receipt Date: 20100209
  Transmission Date: 20100710
  Serious: Yes (Death)
  Sender: FDA-Public Use
  Company Number: 006644

PATIENT
  Age: 47 Year
  Sex: Male

DRUGS (5)
  1. LORTAB [Suspect]
  2. OXYCONTIN [Suspect]
  3. METHADONE HYDROCHLORIDE [Suspect]
  4. VICODIN [Concomitant]
  5. PAXIL [Concomitant]

REACTIONS (1)
  - CARDIAC ARREST [None]
